FAERS Safety Report 8304689-6 (Version None)
Quarter: 2012Q2

REPORT INFORMATION
  Report Type: 
  Country: None (occurrence: None)
  Receive Date: 20120423
  Receipt Date: 20120413
  Transmission Date: 20120825
  Serious: Yes (Death)
  Sender: FDA-Public Use
  Company Number: IT-MILLENNIUM PHARMACEUTICALS, INC.-2012-02627

PATIENT

DRUGS (2)
  1. CYCLOPHOSPHAMIDE [Concomitant]
     Indication: MULTIPLE MYELOMA
     Dosage: 1.5 UNK, UNK
     Dates: end: 20120223
  2. VELCADE [Suspect]
     Indication: MULTIPLE MYELOMA
     Dosage: UNK
     Route: 065

REACTIONS (3)
  - CEREBROVASCULAR ACCIDENT [None]
  - SUDDEN DEATH [None]
  - CARDIOVASCULAR DISORDER [None]
